FAERS Safety Report 5840752-7 (Version None)
Quarter: 2008Q3

REPORT INFORMATION
  Report Type: 
  Country: None (occurrence: None)
  Receive Date: 20080730
  Receipt Date: 20080508
  Transmission Date: 20090109
  Serious: Yes (Other)
  Sender: FDA-Public Use
  Company Number: PHEH2008US04275

PATIENT
  Age: 65 Year
  Sex: Male
  Weight: 88.4 kg

DRUGS (2)
  1. TEKTURNA [Suspect]
     Indication: HYPERTENSION
     Dosage: QD, ORAL
     Route: 046
     Dates: start: 20080425, end: 20080427
  2. BENICAR [Concomitant]

REACTIONS (3)
  - FACE OEDEMA [None]
  - LIP SWELLING [None]
  - PARAESTHESIA [None]
